FAERS Safety Report 8168064-X (Version None)
Quarter: 2012Q1

REPORT INFORMATION
  Report Type: 
  Country: None (occurrence: None)
  Receive Date: 20120227
  Receipt Date: 20120216
  Transmission Date: 20120608
  Serious: Yes (Other)
  Sender: FDA-Public Use
  Company Number: PHHY2012JP004895

PATIENT
  Age: 85 Year
  Sex: Female

DRUGS (4)
  1. ISOSORBIDE DINITRATE [Concomitant]
     Route: 048
  2. EXELON [Suspect]
     Indication: DEMENTIA
     Dosage: UNK UKN, UNK
     Route: 062
     Dates: start: 20111101
  3. EXELON [Suspect]
     Dosage: 13.5MG (THREE 4.5MG PATCHES DAILY)
     Route: 062
     Dates: start: 20120101
  4. EXELON [Suspect]
     Dosage: 18 MG DAILY
     Route: 062
     Dates: start: 20120106, end: 20120119

REACTIONS (7)
  - HYPERSOMNIA [None]
  - ASTHENIA [None]
  - DEPRESSED LEVEL OF CONSCIOUSNESS [None]
  - WRONG TECHNIQUE IN DRUG USAGE PROCESS [None]
  - APHAGIA [None]
  - SOMNOLENCE [None]
  - DYSPHAGIA [None]
